FAERS Safety Report 4917124-2 (Version None)
Quarter: 2006Q1

REPORT INFORMATION
  Report Type: 
  Country: None (occurrence: None)
  Receive Date: 20060221
  Receipt Date: 20050608
  Transmission Date: 20060701
  Serious: Yes (Other)
  Sender: FDA-Public Use
  Company Number: PHNU2005DE02201

PATIENT
  Age: 74 Year
  Sex: Male
  Weight: 73 kg

DRUGS (8)
  1. AREDIA [Suspect]
     Indication: METASTASES TO BONE
     Dosage: 90 MG, UNK
     Route: 042
     Dates: start: 19991217, end: 20010411
  2. ZOMETA [Suspect]
     Indication: METASTASES TO BONE
     Dosage: 4 MG, UNK
     Route: 042
     Dates: start: 20010510, end: 20020206
  3. ZOMETA [Suspect]
     Dosage: 4 MG, UNK
     Route: 042
     Dates: start: 20030303
  4. FLUOROURACIL [Concomitant]
     Indication: RENAL CELL CARCINOMA STAGE UNSPECIFIED
     Dosage: 1883 MG, UNK
     Route: 065
     Dates: start: 20050321
  5. ROFERON [Concomitant]
     Indication: RENAL CELL CARCINOMA STAGE UNSPECIFIED
     Dosage: 3 MIU, UNK
     Route: 065
     Dates: start: 20050221
  6. PROLEUKIN [Concomitant]
     Indication: RENAL CELL CARCINOMA STAGE UNSPECIFIED
     Dosage: 3 MIU, UNK
     Route: 065
     Dates: start: 20050223
  7. ANALGIN [Concomitant]
     Indication: PAIN
     Dosage: BETWEEN 500 TO 1000 MG, UNK
     Route: 065
     Dates: start: 20050221
  8. ZOFRAN ZYDIS LINGUAL [Concomitant]
     Indication: VOMITING
     Dosage: 8 MG, UNK
     Route: 065
     Dates: start: 20050221

REACTIONS (4)
  - OSTEONECROSIS [None]
  - OSTEOTOMY [None]
  - PLASTIC SURGERY [None]
  - SEQUESTRECTOMY [None]
